FAERS Safety Report 8352907-0 (Version None)
Quarter: 2012Q2

REPORT INFORMATION
  Report Type: 
  Country: None (occurrence: None)
  Receive Date: 20120511
  Receipt Date: 20120508
  Transmission Date: 20120825
  Serious: Yes (Death)
  Sender: FDA-Public Use
  Company Number: US-SANOFI-AVENTIS-2012SA032976

PATIENT
  Age: 48 Year
  Sex: Male

DRUGS (3)
  1. SOLOSTAR [Suspect]
     Indication: DEVICE THERAPY
     Route: 065
  2. INSULIN GLARGINE [Suspect]
     Dosage: 100 U/ML
     Route: 058
  3. NOVORAPID [Concomitant]
     Dosage: DOSE: 100 U/ML
     Route: 058

REACTIONS (1)
  - MYOCARDIAL INFARCTION [None]
